FAERS Safety Report 6708738-8 (Version None)
Quarter: 2010Q2

REPORT INFORMATION
  Report Type: 
  Country: None (occurrence: None)
  Receive Date: 20100504
  Receipt Date: 20100426
  Transmission Date: 20101027
  Serious: Yes (Hospitalization, Other)
  Sender: FDA-Public Use
  Company Number: US-BIOGENIDEC-2010BI013784

PATIENT
  Age: 37 Year
  Sex: Male

DRUGS (7)
  1. TYSABRI [Suspect]
     Indication: MULTIPLE SCLEROSIS
     Route: 042
     Dates: start: 20071029
  2. ZOLPIDEM [Concomitant]
     Indication: INSOMNIA
     Route: 048
  3. ZOLPIDEM [Concomitant]
     Route: 048
  4. ADDERALL 30 [Concomitant]
     Route: 048
  5. PROPECIA [Concomitant]
  6. KLONOPIN [Concomitant]
     Route: 048
  7. LORTAB [Concomitant]
     Indication: PAIN
     Route: 048

REACTIONS (1)
  - BIPOLAR I DISORDER [None]
